FAERS Safety Report 10302236 (Version 6)
Quarter: 2016Q3

REPORT INFORMATION
  Report Type: Report from Study
  Country: US (occurrence: US)
  Receive Date: 20140714
  Receipt Date: 20160805
  Transmission Date: 20161109
  Serious: Yes (Hospitalization, Other)
  Sender: FDA-Public Use
  Company Number: US-SA-2014SA089121

PATIENT
  Age: 54 Year
  Sex: Male

DRUGS (6)
  1. AUBAGIO [Suspect]
     Active Substance: TERIFLUNOMIDE
     Indication: MULTIPLE SCLEROSIS
     Route: 048
     Dates: start: 20130531
  2. AUBAGIO [Suspect]
     Active Substance: TERIFLUNOMIDE
     Indication: MULTIPLE SCLEROSIS
     Route: 048
     Dates: end: 20160722
  3. AUBAGIO [Suspect]
     Active Substance: TERIFLUNOMIDE
     Indication: MULTIPLE SCLEROSIS
     Route: 048
     Dates: end: 2015
  4. AUBAGIO [Suspect]
     Active Substance: TERIFLUNOMIDE
     Indication: MULTIPLE SCLEROSIS
     Route: 048
     Dates: start: 20160723, end: 20160723
  5. AUBAGIO [Suspect]
     Active Substance: TERIFLUNOMIDE
     Indication: MULTIPLE SCLEROSIS
     Route: 048
     Dates: start: 20160724
  6. AUBAGIO [Suspect]
     Active Substance: TERIFLUNOMIDE
     Indication: MULTIPLE SCLEROSIS
     Route: 048
     Dates: start: 20130605, end: 20141019

REACTIONS (7)
  - Abdominal discomfort [Recovered/Resolved]
  - Drug dose omission [Unknown]
  - Extra dose administered [Unknown]
  - Nephrolithiasis [Unknown]
  - Bladder disorder [Unknown]
  - Dysuria [Unknown]
  - Mobility decreased [Unknown]

NARRATIVE: CASE EVENT DATE: 201404
